FAERS Safety Report 9683374 (Version 3)
Quarter: 2014Q1

REPORT INFORMATION
  Report Type: Spontaneous
  Country: US (occurrence: US)
  Receive Date: 20131112
  Receipt Date: 20140115
  Transmission Date: 20141002
  Serious: No
  Sender: FDA-Public Use
  Company Number: US-PFIZER INC-2013235966

PATIENT
  Age: 54 Year
  Sex: Female

DRUGS (1)
  1. LYRICA [Suspect]
     Dosage: UNK
     Dates: start: 201201, end: 201303

REACTIONS (7)
  - Swelling [Unknown]
  - Amnesia [Unknown]
  - Insomnia [Unknown]
  - Vision blurred [Unknown]
  - Cardiac disorder [Unknown]
  - Somnolence [Unknown]
  - Local swelling [Unknown]
